FAERS Safety Report 7809156-1 (Version None)
Quarter: 2011Q4

REPORT INFORMATION
  Report Type: 
  Country: None (occurrence: None)
  Receive Date: 20111006
  Receipt Date: 20110927
  Transmission Date: 20120403
  Serious: Yes (Hospitalization)
  Sender: FDA-Public Use
  Company Number: 2011MA014540

PATIENT
  Age: 88 Year
  Sex: Female

DRUGS (10)
  1. OMEPRAZOLE [Concomitant]
  2. DIAZEPAM [Suspect]
     Indication: ANXIETY
     Dosage: 1 MG; PRN; PO
     Route: 048
  3. ATORVASTATIN [Concomitant]
  4. PREDNISOLONE [Concomitant]
  5. BUPRENORPHINE [Suspect]
     Indication: PAIN
     Dosage: 5 MCG; ;TDER
  6. ACETAMINOPHEN AND CODEINE PHOSPHATE [Concomitant]
  7. MIRTAZAPINE [Concomitant]
  8. TOLTERODINE TARTRATE [Concomitant]
  9. CALCIUM CARBONATE [Concomitant]
  10. PERINDOPRIL ERBUMINE [Concomitant]

REACTIONS (1)
  - DEPRESSED LEVEL OF CONSCIOUSNESS [None]
